FAERS Safety Report 17750092 (Version 1)
Quarter: 2020Q2

REPORT INFORMATION
  Report Type: Report from Study
  Country: DE (occurrence: DE)
  Receive Date: 20200506
  Receipt Date: 20200506
  Transmission Date: 20200714
  Serious: Yes (Hospitalization)
  Sender: FDA-Public Use
  Company Number: DE-ELI_LILLY_AND_COMPANY-DE201607013524

PATIENT
  Age: 58 Year
  Sex: Male
  Weight: 93 kg

DRUGS (4)
  1. FOLINIC ACID [Suspect]
     Active Substance: LEUCOVORIN
     Indication: COLORECTAL CANCER METASTATIC
     Dosage: 600 MG, WEEKLY (1/W)
     Route: 042
     Dates: start: 20160502
  2. 5-FLUOROURACIL [Suspect]
     Active Substance: FLUOROURACIL
     Indication: COLORECTAL CANCER METASTATIC
     Dosage: 600MG/3600MG, DAILY
     Route: 042
     Dates: start: 20160502
  3. IRINOTECAN [Suspect]
     Active Substance: IRINOTECAN
     Indication: COLORECTAL CANCER METASTATIC
     Dosage: 270 MG, EVERY TWO WEEKS
     Route: 042
     Dates: start: 20160502
  4. CETUXIMAB. [Suspect]
     Active Substance: CETUXIMAB
     Indication: COLORECTAL CANCER METASTATIC
     Dosage: 375 MG, UNKNOWN
     Route: 042
     Dates: start: 20160502

REACTIONS (6)
  - Pleural effusion [Recovered/Resolved]
  - Generalised oedema [Recovered/Resolved]
  - Vascular device infection [Recovered/Resolved]
  - Anaemia [Recovered/Resolved]
  - Urinary tract infection [Recovered/Resolved]
  - General physical health deterioration [Recovered/Resolved]

NARRATIVE: CASE EVENT DATE: 20160706
